FAERS Safety Report 9774827 (Version 1)
Quarter: 2013Q4

REPORT INFORMATION
  Report Type: Spontaneous
  Country: US (occurrence: US)
  Receive Date: 20131220
  Receipt Date: 20131220
  Transmission Date: 20140711
  Serious: Yes (Other)
  Sender: FDA-Public Use
  Company Number: US-PFIZER INC-2013363482

PATIENT
  Age: 31 Year
  Sex: Male
  Weight: 79.37 kg

DRUGS (1)
  1. DILANTIN [Suspect]
     Indication: GRAND MAL CONVULSION
     Dosage: 200 MG, 2X/DAY

REACTIONS (2)
  - Convulsion [Unknown]
  - Drug ineffective [Unknown]
